FAERS Safety Report 14789490 (Version 1)
Quarter: 2018Q2

REPORT INFORMATION
  Report Type: Spontaneous
  Country: US (occurrence: US)
  Receive Date: 20180423
  Receipt Date: 20180423
  Transmission Date: 20180711
  Serious: No
  Sender: FDA-Public Use
  Company Number: US-TEVA-792198ACC

PATIENT
  Age: 76 Year
  Sex: Female

DRUGS (1)
  1. ACICLOVIR [Suspect]
     Active Substance: ACYCLOVIR
     Indication: HERPES ZOSTER
     Dosage: FORM STRENGTH: 200 MG/5ML
     Dates: start: 20170710

REACTIONS (7)
  - Pain [Not Recovered/Not Resolved]
  - Eyelid oedema [Unknown]
  - Flatulence [Unknown]
  - Muscle twitching [Unknown]
  - Tinnitus [Not Recovered/Not Resolved]
  - Burning sensation [Unknown]
  - Eye disorder [Unknown]
